FAERS Safety Report 21551823 (Version 1)
Quarter: 2022Q4

REPORT INFORMATION
  Report Type: Report from Study
  Country: US (occurrence: None)
  Receive Date: 20221104
  Receipt Date: 20221104
  Transmission Date: 20230113
  Serious: Yes (Death)
  Sender: FDA-Public Use
  Company Number: 2022A362193

PATIENT
  Sex: Male

DRUGS (1)
  1. TAGRISSO [Suspect]
     Active Substance: OSIMERTINIB
     Dosage: TAKE 1 TABLET 40MG EVERY OTHER DAY ALTERNATING WITH 80MG TABLET EVERY OTHER DAY
     Route: 048

REACTIONS (1)
  - Death [Fatal]
